FAERS Safety Report 13030965 (Version 1)
Quarter: 2016Q4

REPORT INFORMATION
  Report Type: Spontaneous
  Country: US (occurrence: US)
  Receive Date: 20161215
  Receipt Date: 20161215
  Transmission Date: 20170207
  Serious: No
  Sender: FDA-Public Use
  Company Number: US-EMD SERONO-8127957

PATIENT
  Age: 55 Year
  Sex: Female

DRUGS (1)
  1. REBIF [Suspect]
     Active Substance: INTERFERON BETA-1A
     Indication: MULTIPLE SCLEROSIS
     Route: 058
     Dates: start: 20160222, end: 20161105

REACTIONS (7)
  - Injection site swelling [Unknown]
  - Nasal congestion [Unknown]
  - Headache [Unknown]
  - Injection site pain [Recovered/Resolved]
  - Injection site rash [Unknown]
  - Injection site reaction [Unknown]
  - Injection site ulcer [Unknown]

NARRATIVE: CASE EVENT DATE: 201602
